FAERS Safety Report 9746673 (Version 1)
Quarter: 2013Q4

REPORT INFORMATION
  Report Type: Spontaneous
  Country: MX (occurrence: MX)
  Receive Date: 20131211
  Receipt Date: 20131211
  Transmission Date: 20140711
  Serious: Yes (Death, Hospitalization, Other)
  Sender: FDA-Public Use
  Company Number: MX-UCBSA-104985

PATIENT
  Age: 73 Year
  Sex: Female
  Weight: 50 kg

DRUGS (2)
  1. NUBRENZA [Suspect]
     Indication: PARKINSON^S DISEASE
     Dosage: 2MG DAILY, 6 DOSES RECEIVED
     Route: 062
     Dates: start: 20131024, end: 20131103
  2. CLOISONE [Concomitant]
     Indication: PARKINSON^S DISEASE
     Dosage: 250/25 MG
     Route: 048
     Dates: start: 2010, end: 20131103

REACTIONS (3)
  - Pneumonia [Fatal]
  - Cardio-respiratory arrest [Fatal]
  - Aspiration bronchial [Fatal]
